FAERS Safety Report 12672709 (Version 1)
Quarter: 2016Q3

REPORT INFORMATION
  Report Type: Spontaneous
  Country: US (occurrence: US)
  Receive Date: 20160822
  Receipt Date: 20160822
  Transmission Date: 20161109
  Serious: No
  Sender: FDA-Public Use
  Company Number: US-JNJFOC-20160721940

PATIENT
  Sex: Male
  Weight: 91.63 kg

DRUGS (5)
  1. MENS ROGAINE UNSCENTED FORMULA [Suspect]
     Active Substance: MINOXIDIL
     Indication: ALOPECIA
     Dosage: 1/2 CAP
     Route: 061
  2. MENS ROGAINE UNSCENTED FORMULA [Suspect]
     Active Substance: MINOXIDIL
     Route: 061
  3. GARCINIA CAMBOGIA COMP [Concomitant]
     Active Substance: DIETARY SUPPLEMENT
     Indication: WEIGHT CONTROL
     Route: 065
  4. LIPITOR [Concomitant]
     Active Substance: ATORVASTATIN CALCIUM
     Indication: HYPERTENSION
     Route: 065
  5. LOSARTAN. [Concomitant]
     Active Substance: LOSARTAN
     Indication: BLOOD CHOLESTEROL INCREASED
     Route: 065

REACTIONS (3)
  - Drug administered at inappropriate site [Not Recovered/Not Resolved]
  - Medication residue present [Not Recovered/Not Resolved]
  - Self-medication [Not Recovered/Not Resolved]
